FAERS Safety Report 13110973 (Version 6)
Quarter: 2019Q1

REPORT INFORMATION
  Report Type: Report from Study
  Country: US (occurrence: US)
  Receive Date: 20170112
  Receipt Date: 20190201
  Transmission Date: 20190417
  Serious: Yes (Hospitalization)
  Sender: FDA-Public Use
  Company Number: US-PFIZER INC-2017011785

PATIENT
  Age: 65 Year
  Sex: Female
  Weight: 67 kg

DRUGS (11)
  1. MORPHINE SULFATE. [Suspect]
     Active Substance: MORPHINE SULFATE
     Indication: ACUTE RESPIRATORY FAILURE
     Dosage: 4 MG, QID
     Route: 042
     Dates: start: 20161117, end: 20161119
  2. MORPHINE SULFATE. [Suspect]
     Active Substance: MORPHINE SULFATE
     Indication: CARDIAC FAILURE CONGESTIVE
     Dosage: 2 MG, UNK
     Route: 042
     Dates: start: 20161118, end: 20161118
  3. VITAMIN D3 [Concomitant]
     Active Substance: CHOLECALCIFEROL
     Indication: NUTRITIONAL SUPPLEMENTATION
     Dosage: UNK
     Dates: start: 2013
  4. PF-04383119 [Suspect]
     Active Substance: TANEZUMAB
     Dosage: 5 MG EVERY 8 WEEKS
     Route: 058
     Dates: start: 20160525, end: 20160525
  5. FUROSEMIDE. [Concomitant]
     Active Substance: FUROSEMIDE
     Indication: PULMONARY OEDEMA
     Dosage: UNK
     Dates: start: 2005
  6. TEMAZEPAM. [Concomitant]
     Active Substance: TEMAZEPAM
     Indication: INSOMNIA
     Dosage: UNK
     Dates: start: 1999
  7. PF-04383119 [Suspect]
     Active Substance: TANEZUMAB
     Indication: BACK PAIN
     Dosage: 5 MG EVERY 8 WEEKS
     Route: 058
     Dates: start: 20160330, end: 20160330
  8. CRESTOR [Concomitant]
     Active Substance: ROSUVASTATIN CALCIUM
     Indication: HYPERCHOLESTEROLAEMIA
     Dosage: UNK
     Dates: start: 2014
  9. METOPROLOL. [Concomitant]
     Active Substance: METOPROLOL
     Indication: HYPERTROPHIC CARDIOMYOPATHY
     Dosage: UNK
     Dates: start: 20161001
  10. PROGESTERONE. [Concomitant]
     Active Substance: PROGESTERONE
     Indication: MENOPAUSAL SYMPTOMS
     Dosage: UNK
     Dates: start: 2012
  11. VIVELLE-DOT [Concomitant]
     Active Substance: ESTRADIOL
     Indication: MENOPAUSAL SYMPTOMS
     Dosage: PATCH
     Dates: start: 2012

REACTIONS (5)
  - Cardiac failure congestive [Recovered/Resolved]
  - Acute respiratory failure [Recovered/Resolved]
  - Acute kidney injury [Recovered/Resolved]
  - Staphylococcal sepsis [Recovered/Resolved]
  - Atrial fibrillation [Recovered/Resolved]

NARRATIVE: CASE EVENT DATE: 20161117
